FAERS Safety Report 10905319 (Version 1)
Quarter: 2015Q1

REPORT INFORMATION
  Report Type: Spontaneous
  Country: US (occurrence: None)
  Receive Date: 20150309
  Receipt Date: 20150309
  Transmission Date: 20150721
  Serious: Yes (Other)
  Sender: FDA-Public Use
  Company Number: None

PATIENT
  Age: 33 Year
  Sex: Female
  Weight: 93.44 kg

DRUGS (13)
  1. VENLAFAXINE [Suspect]
     Active Substance: VENLAFAXINE HYDROCHLORIDE
     Indication: DEPRESSION
     Dates: start: 20060101, end: 20150306
  2. LAMICTAL [Concomitant]
     Active Substance: LAMOTRIGINE
  3. VENLAFAXINE [Suspect]
     Active Substance: VENLAFAXINE HYDROCHLORIDE
     Indication: ANXIETY
     Dates: start: 20060101, end: 20150306
  4. YAZ [Concomitant]
     Active Substance: DROSPIRENONE\ETHINYL ESTRADIOL
  5. TRAMADOL [Concomitant]
     Active Substance: TRAMADOL
  6. MULTI VITAMINS [Concomitant]
  7. VENLAFAXINE [Suspect]
     Active Substance: VENLAFAXINE HYDROCHLORIDE
     Indication: BIPOLAR DISORDER
     Dates: start: 20060101, end: 20150306
  8. TYLENOL [Concomitant]
     Active Substance: ACETAMINOPHEN
  9. FETZIMA [Concomitant]
     Active Substance: LEVOMILNACIPRAN HYDROCHLORIDE
  10. METHYLPHENIDATE [Concomitant]
     Active Substance: METHYLPHENIDATE
  11. VITAMIN B12 [Concomitant]
     Active Substance: CYANOCOBALAMIN
  12. CLONAZEPAM. [Concomitant]
     Active Substance: CLONAZEPAM
  13. IBUPROFEN. [Concomitant]
     Active Substance: IBUPROFEN

REACTIONS (11)
  - Diarrhoea [None]
  - Drug withdrawal syndrome [None]
  - Abdominal pain upper [None]
  - Vertigo [None]
  - Vision blurred [None]
  - Migraine [None]
  - Pyrexia [None]
  - Headache [None]
  - Nausea [None]
  - Dizziness [None]
  - Nightmare [None]

NARRATIVE: CASE EVENT DATE: 20150224
